FAERS Safety Report 8240206-7 (Version None)
Quarter: 2012Q1

REPORT INFORMATION
  Report Type: 
  Country: None (occurrence: None)
  Receive Date: 20120312
  Receipt Date: 20120210
  Transmission Date: 20120608
  Serious: Yes (Disabling)
  Sender: FDA-Public Use
  Company Number: 2012SP007924

PATIENT
  Age: 49 Year
  Sex: Female

DRUGS (4)
  1. LITHIUM CARBONATE [Concomitant]
  2. SAPHRIS [Suspect]
     Indication: BIPOLAR I DISORDER
     Dosage: 2.5 MG;QD;SL
     Route: 060
  3. ABILIFY [Concomitant]
  4. LAMICTAL [Concomitant]

REACTIONS (4)
  - ABASIA [None]
  - INAPPROPRIATE SCHEDULE OF DRUG ADMINISTRATION [None]
  - WRONG TECHNIQUE IN DRUG USAGE PROCESS [None]
  - UNDERDOSE [None]
